FAERS Safety Report 4755583-9 (Version None)
Quarter: 2005Q3

REPORT INFORMATION
  Report Type: 
  Country: None (occurrence: None)
  Receive Date: 20050830
  Receipt Date: 20050523
  Transmission Date: 20060218
  Serious: Yes (Hospitalization, Other)
  Sender: FDA-Public Use
  Company Number: US-BRISTOL-MYERS SQUIBB COMPANY-12979092

PATIENT
  Sex: Female

DRUGS (1)
  1. ABILIFY [Suspect]
     Dates: start: 20050513, end: 20050513

REACTIONS (2)
  - DYSTONIA [None]
  - INCORRECT DOSE ADMINISTERED [None]
